FAERS Safety Report 11381100 (Version 1)
Quarter: 2015Q3

REPORT INFORMATION
  Report Type: Spontaneous
  Country: US (occurrence: None)
  Receive Date: 20150813
  Receipt Date: 20150813
  Transmission Date: 20151125
  Serious: Yes (Life-Threatening, Hospitalization)
  Sender: FDA-Public Use
  Company Number: None

PATIENT
  Age: 92 Year
  Sex: Female
  Weight: 61 kg

DRUGS (1)
  1. DIGOXIN 0.125 MG [Suspect]
     Active Substance: DIGOXIN
     Indication: CARDIAC FAILURE CONGESTIVE
     Dosage: UNKNOWN, BUT } 2 MONTHS
     Route: 048

REACTIONS (8)
  - Toxicity to various agents [None]
  - Hyperhidrosis [None]
  - Sepsis [None]
  - Acute myocardial infarction [None]
  - Urinary tract infection [None]
  - Pneumonia [None]
  - Asthenia [None]
  - Blood glucose increased [None]

NARRATIVE: CASE EVENT DATE: 20150716
